FAERS Safety Report 15961877 (Version 16)
Quarter: 2023Q1

REPORT INFORMATION
  Report Type: Report from Study
  Country: CA (occurrence: CA)
  Receive Date: 20190214
  Receipt Date: 20230211
  Transmission Date: 20230417
  Serious: Yes (Other)
  Sender: FDA-Public Use
  Company Number: PHHY2018CA119541

PATIENT
  Age: 60 Year
  Sex: Female

DRUGS (15)
  1. COSENTYX [Suspect]
     Active Substance: SECUKINUMAB
     Indication: Psoriasis
     Dosage: 300 MG, QW
     Route: 058
     Dates: start: 20180925
  2. COSENTYX [Suspect]
     Active Substance: SECUKINUMAB
     Dosage: 300 MG, QW
     Route: 058
     Dates: start: 20181009
  3. COSENTYX [Suspect]
     Active Substance: SECUKINUMAB
     Dosage: 300 MG, QMO
     Route: 058
  4. COSENTYX [Suspect]
     Active Substance: SECUKINUMAB
     Dosage: 300 MG, Q2W
     Route: 058
  5. COSENTYX [Suspect]
     Active Substance: SECUKINUMAB
     Dosage: 300 MG, Q2W
     Route: 058
  6. COSENTYX [Suspect]
     Active Substance: SECUKINUMAB
     Dosage: 300 MG, Q2W
     Route: 058
     Dates: start: 20230124
  7. METHOTREXATE [Concomitant]
     Active Substance: METHOTREXATE
     Indication: Product used for unknown indication
     Dosage: UNK
     Route: 065
  8. HUMIRA [Concomitant]
     Active Substance: ADALIMUMAB
     Indication: Product used for unknown indication
     Dosage: UNK
     Route: 065
  9. CLOBETASOL [Concomitant]
     Active Substance: CLOBETASOL
     Indication: Product used for unknown indication
     Dosage: UNK
     Route: 065
     Dates: start: 20180824
  10. PROTOPIC [Concomitant]
     Active Substance: TACROLIMUS
     Indication: Product used for unknown indication
     Dosage: UNK
     Route: 065
  11. CALCIPOTRIENE AND BETAMETHASONE DIPROPIONATE [Concomitant]
     Active Substance: BETAMETHASONE DIPROPIONATE\CALCIPOTRIENE
     Indication: Product used for unknown indication
     Dosage: UNK
     Route: 065
  12. ACITRETIN [Concomitant]
     Active Substance: ACITRETIN
     Indication: Product used for unknown indication
     Dosage: UNK
     Route: 065
  13. CALCITRIOL [Concomitant]
     Active Substance: CALCITRIOL
     Indication: Product used for unknown indication
     Dosage: UNK
     Route: 065
  14. MINT HYDROXYCHLOROQUINE [Concomitant]
     Indication: Product used for unknown indication
     Dosage: 1 DOSAGE FORM, BID
     Route: 065
     Dates: start: 20200102
  15. HYDROXYCHLOROQUINE [Concomitant]
     Active Substance: HYDROXYCHLOROQUINE
     Indication: Product used for unknown indication
     Dosage: UNK UNK, BID
     Route: 065
     Dates: start: 20200102

REACTIONS (43)
  - Oral fungal infection [Unknown]
  - Abdominal infection [Unknown]
  - Infectious thyroiditis [Unknown]
  - Fungal infection [Unknown]
  - Blood pressure increased [Unknown]
  - Throat irritation [Unknown]
  - Feeling abnormal [Unknown]
  - Chills [Unknown]
  - Pyrexia [Unknown]
  - Flushing [Unknown]
  - Inflammation [Unknown]
  - Eye disorder [Unknown]
  - Taste disorder [Unknown]
  - Bronchitis chronic [Unknown]
  - Sinus congestion [Not Recovered/Not Resolved]
  - Chest pain [Unknown]
  - Cough [Unknown]
  - Nasopharyngitis [Unknown]
  - Chest discomfort [Unknown]
  - Oropharyngeal pain [Unknown]
  - Fatigue [Not Recovered/Not Resolved]
  - Viral infection [Unknown]
  - Respiratory tract congestion [Unknown]
  - Corneal abrasion [Unknown]
  - Stress [Unknown]
  - Eye pain [Unknown]
  - Concomitant disease aggravated [Unknown]
  - Blepharitis [Unknown]
  - Arthritis [Unknown]
  - Memory impairment [Unknown]
  - Lung disorder [Unknown]
  - Asthma [Not Recovered/Not Resolved]
  - Sneezing [Unknown]
  - Nasal congestion [Unknown]
  - Illness [Unknown]
  - COVID-19 [Unknown]
  - Diarrhoea [Unknown]
  - Urticaria [Unknown]
  - Rhinorrhoea [Unknown]
  - Psoriasis [Unknown]
  - Product quality issue [Unknown]
  - Product distribution issue [Unknown]
  - Product packaging issue [Unknown]

NARRATIVE: CASE EVENT DATE: 20180925
